FAERS Safety Report 24886158 (Version 1)
Quarter: 2025Q1

REPORT INFORMATION
  Report Type: Spontaneous
  Country: CH (occurrence: CH)
  Receive Date: 20250125
  Receipt Date: 20250125
  Transmission Date: 20250408
  Serious: Yes (Other)
  Sender: TEVA
  Company Number: None

PATIENT
  Age: 70 Year
  Sex: Male
  Weight: 78 kg

DRUGS (1)
  1. TAMSULOSIN [Suspect]
     Active Substance: TAMSULOSIN
     Indication: Benign prostatic hyperplasia
     Dosage: TAMSULOSIN MEPHA
     Route: 048
     Dates: start: 20210101, end: 20210330

REACTIONS (1)
  - Floppy iris syndrome [Recovered/Resolved]

NARRATIVE: CASE EVENT DATE: 20241119
